FAERS Safety Report 13068574 (Version 1)
Quarter: 2016Q4

REPORT INFORMATION
  Report Type: Spontaneous
  Country: US (occurrence: US)
  Receive Date: 20161227
  Receipt Date: 20161227
  Transmission Date: 20170207
  Serious: Yes (Other)
  Sender: FDA-Public Use
  Company Number: None

PATIENT
  Age: 66 Year
  Sex: Female
  Weight: 83.25 kg

DRUGS (6)
  1. VITAMIN C [Concomitant]
     Active Substance: ASCORBIC ACID
  2. CITALOPRAM [Suspect]
     Active Substance: CITALOPRAM HYDROBROMIDE
     Indication: DEPRESSION
     Dosage: ?          QUANTITY:1.5 TABLET(S);?
     Route: 048
     Dates: start: 20161020
  3. HYDROCODONE [Concomitant]
     Active Substance: HYDROCODONE
  4. CALCIUM WITH D [Concomitant]
     Active Substance: CALCIUM\VITAMIN D
  5. OXYCONTIN [Concomitant]
     Active Substance: OXYCODONE HYDROCHLORIDE
  6. VITAMIN B COMPLEX [Concomitant]
     Active Substance: CYANOCOBALAMIN\DEXPANTHENOL\NIACINAMIDE\PYRIDOXINE HYDROCHLORIDE\RIBOFLAVIN 5^-PHOSPHATE SODIUM\THIAMINE HYDROCHLORIDE\VITAMIN B COMPLEX

REACTIONS (1)
  - Alopecia [None]

NARRATIVE: CASE EVENT DATE: 20161108
